FAERS Safety Report 6698757-2 (Version None)
Quarter: 2010Q2

REPORT INFORMATION
  Report Type: 
  Country: None (occurrence: None)
  Receive Date: 20100427
  Receipt Date: 20100415
  Transmission Date: 20101027
  Serious: Yes (Hospitalization)
  Sender: FDA-Public Use
  Company Number: PHHY2010JP06101

PATIENT
  Sex: Female

DRUGS (6)
  1. DIOVAN [Suspect]
     Indication: HYPERTENSION
     Dosage: 80 MG, QD
     Route: 048
     Dates: start: 20081110
  2. ADALAT CC [Concomitant]
     Indication: HYPERTENSION
     Dosage: 20 MG, UNK
     Route: 048
  3. TAKEPRON [Concomitant]
     Dosage: 30 MG, UNK
     Route: 048
  4. LAXOBERON [Concomitant]
     Dosage: 2.5 MG, UNK
     Route: 048
  5. FERROMIA [Concomitant]
     Dosage: 100 MG, UNK
     Route: 048
  6. DEPAS [Concomitant]
     Dosage: 1 MG, UNK
     Route: 048

REACTIONS (1)
  - CONSTIPATION [None]
